FAERS Safety Report 11358752 (Version 1)
Quarter: 2015Q3

REPORT INFORMATION
  Report Type: Spontaneous
  Country: US (occurrence: None)
  Receive Date: 20150806
  Receipt Date: 20150806
  Transmission Date: 20151125
  Serious: Yes (Other)
  Sender: FDA-Public Use
  Company Number: DEP_03260_2015

PATIENT
  Age: 56 Year
  Sex: Female
  Weight: 90.72 kg

DRUGS (5)
  1. STOOL SOFTENER [Concomitant]
     Active Substance: DOCUSATE CALCIUM
  2. VITAMIN D /00107901/ [Concomitant]
     Active Substance: ERGOCALCIFEROL
  3. IRON [Concomitant]
     Active Substance: IRON
  4. NUCYNTA [Suspect]
     Active Substance: TAPENTADOL HYDROCHLORIDE
     Indication: PAIN
     Dosage: (DF ORAL)
     Route: 048
     Dates: start: 20150625, end: 20150625
  5. CALCIUM [Concomitant]
     Active Substance: CALCIUM

REACTIONS (13)
  - Nausea [None]
  - Agitation [None]
  - Fear [None]
  - Presyncope [None]
  - Psychomotor hyperactivity [None]
  - Anxiety [None]
  - Heart rate increased [None]
  - Feeling abnormal [None]
  - Dyspnoea [None]
  - Nervousness [None]
  - Paranoia [None]
  - Confusional state [None]
  - Dry mouth [None]

NARRATIVE: CASE EVENT DATE: 20150625
